FAERS Safety Report 5803320-9 (Version None)
Quarter: 2008Q3

REPORT INFORMATION
  Report Type: 
  Country: None (occurrence: None)
  Receive Date: 20080708
  Receipt Date: 20080707
  Transmission Date: 20090109
  Serious: Yes (Other)
  Sender: FDA-Public Use
  Company Number: D0057990A

PATIENT
  Sex: Male

DRUGS (2)
  1. AVODART [Suspect]
     Dosage: .5MG PER DAY
     Route: 048
  2. AKTREN [Concomitant]
     Dosage: 200MG AS REQUIRED
     Route: 048

REACTIONS (3)
  - HAEMATOMA [None]
  - HAEMODILUTION [None]
  - HAEMORRHAGE [None]
